FAERS Safety Report 9979021 (Version 1)
Quarter: 2014Q1

REPORT INFORMATION
  Report Type: Report from Study
  Country: US (occurrence: US)
  Receive Date: 20140306
  Receipt Date: 20140306
  Transmission Date: 20141002
  Serious: No
  Sender: FDA-Public Use
  Company Number: US-ABBVIE-13P-163-1172427-00

PATIENT
  Age: 68 Year
  Sex: Female
  Weight: 95.34 kg

DRUGS (10)
  1. HUMIRA [Suspect]
     Indication: RHEUMATOID ARTHRITIS
     Dates: start: 201212
  2. HUMIRA [Suspect]
  3. CELEBREX [Concomitant]
     Indication: RHEUMATOID ARTHRITIS
  4. PREDNISONE [Concomitant]
     Indication: RHEUMATOID ARTHRITIS
  5. VITAMIN D [Concomitant]
     Indication: VITAMIN SUPPLEMENTATION
  6. FLUOXETINE [Concomitant]
     Indication: DEPRESSION
  7. LEVOTHYROXINE [Concomitant]
     Indication: THYROIDECTOMY
  8. WARFARIN [Concomitant]
     Indication: DEEP VEIN THROMBOSIS
  9. PHENYTOIN SODIUM [Concomitant]
     Indication: GRAND MAL CONVULSION
  10. TEMAZEPAM [Concomitant]
     Indication: INSOMNIA

REACTIONS (8)
  - Deformity [Not Recovered/Not Resolved]
  - Pneumonia [Recovered/Resolved]
  - Drug ineffective [Not Recovered/Not Resolved]
  - Pain [Not Recovered/Not Resolved]
  - Rheumatoid arthritis [Not Recovered/Not Resolved]
  - Nausea [Recovered/Resolved]
  - Vomiting [Recovered/Resolved]
  - Nasopharyngitis [Not Recovered/Not Resolved]
